FAERS Safety Report 10206729 (Version 1)
Quarter: 2014Q2

REPORT INFORMATION
  Report Type: Spontaneous
  Country: US (occurrence: US)
  Receive Date: 20140530
  Receipt Date: 20140530
  Transmission Date: 20141212
  Serious: No
  Sender: FDA-Public Use
  Company Number: US-PFIZER INC-2014145358

PATIENT
  Sex: Female

DRUGS (1)
  1. ETHINYL ESTRADIOL/NORGESTREL [Suspect]
     Indication: BLOOD DISORDER
     Dosage: UNK

REACTIONS (6)
  - Dyspnoea [Unknown]
  - Discomfort [Unknown]
  - Menstruation irregular [Unknown]
  - Weight increased [Unknown]
  - Emotional disorder [Unknown]
  - Drug effect variable [Unknown]
